FAERS Safety Report 4439714-6 (Version None)
Quarter: 2004Q3

REPORT INFORMATION
  Report Type: 
  Country: None (occurrence: None)
  Receive Date: 20040831
  Receipt Date: 20040818
  Transmission Date: 20050211
  Serious: Yes (Hospitalization)
  Sender: FDA-Public Use
  Company Number: 2004CG01634

PATIENT
  Age: 62 Year
  Sex: Female
  Weight: 62 kg

DRUGS (3)
  1. ARIMIDEX [Suspect]
     Indication: BREAST CANCER
     Dosage: 1 MG QD PO
     Route: 048
     Dates: start: 20040401, end: 20040706
  2. RADIOTHERAPY [Concomitant]
  3. CLASTOBAN [Concomitant]

REACTIONS (4)
  - ARTHRITIS [None]
  - DYSAESTHESIA [None]
  - INFLAMMATION [None]
  - ROSACEA [None]
